FAERS Safety Report 7428488-2 (Version None)
Quarter: 2011Q2

REPORT INFORMATION
  Report Type: 
  Country: None (occurrence: None)
  Receive Date: 20110421
  Receipt Date: 20110415
  Transmission Date: 20111010
  Serious: Yes (Hospitalization)
  Sender: FDA-Public Use
  Company Number: US-NOVOPROD-325120

PATIENT
  Sex: Female
  Weight: 81.633 kg

DRUGS (3)
  1. HUMALOG [Concomitant]
     Indication: TYPE 2 DIABETES MELLITUS
     Dosage: UNK
  2. LEVEMIR [Suspect]
     Indication: TYPE 2 DIABETES MELLITUS
     Dosage: UNK
     Route: 058
  3. TYLENOL (CAPLET) [Concomitant]
     Indication: ARTHRITIS
     Dosage: UNK
     Route: 048

REACTIONS (3)
  - SUBCUTANEOUS ABSCESS [None]
  - DEVICE MALFUNCTION [None]
  - BLOOD GLUCOSE FLUCTUATION [None]
